FAERS Safety Report 4435136-2 (Version None)
Quarter: 2004Q3

REPORT INFORMATION
  Report Type: 
  Country: None (occurrence: None)
  Receive Date: 20040826
  Receipt Date: 20040826
  Transmission Date: 20050211
  Serious: Yes (Hospitalization)
  Sender: FDA-Public Use
  Company Number: None

PATIENT
  Age: 6 Year
  Sex: Male

DRUGS (2)
  1. CISATRACURIUM BESYLATE [Suspect]
     Dosage: 2 MG IV
     Route: 042
     Dates: start: 20040528
  2. FENTANYL [Concomitant]

REACTIONS (2)
  - ANAESTHETIC COMPLICATION CARDIAC [None]
  - CARDIO-RESPIRATORY ARREST [None]
